FAERS Safety Report 19066123 (Version 2)
Quarter: 2021Q2

REPORT INFORMATION
  Report Type: Report from Study
  Country: US (occurrence: US)
  Receive Date: 20210327
  Receipt Date: 20210426
  Transmission Date: 20210717
  Serious: No
  Sender: FDA-Public Use
  Company Number: US-TAKEDA-2021TUS016851

PATIENT
  Sex: Male
  Weight: 18 kg

DRUGS (6)
  1. TEDUGLUTIDE [Suspect]
     Active Substance: TEDUGLUTIDE
     Indication: SHORT-BOWEL SYNDROME
     Dosage: 0.85 MILLILITER, QD
     Route: 058
     Dates: start: 20210303
  2. TEDUGLUTIDE [Suspect]
     Active Substance: TEDUGLUTIDE
     Indication: SHORT-BOWEL SYNDROME
     Dosage: 0.85 MILLILITER, QD
     Route: 058
     Dates: start: 20210303
  3. TEDUGLUTIDE [Suspect]
     Active Substance: TEDUGLUTIDE
     Indication: SHORT-BOWEL SYNDROME
     Dosage: 0.85 MILLILITER, QD
     Route: 058
     Dates: start: 20210303
  4. LOPERAMIDE [Concomitant]
     Active Substance: LOPERAMIDE
     Dosage: 2.7 MILLIGRAM, TID
     Route: 048
     Dates: start: 2017
  5. TEDUGLUTIDE [Suspect]
     Active Substance: TEDUGLUTIDE
     Indication: SHORT-BOWEL SYNDROME
     Dosage: 0.85 MILLILITER, QD
     Route: 058
     Dates: start: 20210303
  6. CHOLESTYRAMINE. [Concomitant]
     Active Substance: CHOLESTYRAMINE
     Dosage: 4 GRAM, BID
     Route: 048
     Dates: start: 2018

REACTIONS (5)
  - Discomfort [Recovered/Resolved]
  - Needle issue [Recovered/Resolved]
  - Headache [Unknown]
  - Malabsorption from injection site [Unknown]
  - Pain [Recovered/Resolved]
